FAERS Safety Report 8485940-9 (Version None)
Quarter: 2012Q3

REPORT INFORMATION
  Report Type: 
  Country: None (occurrence: None)
  Receive Date: 20120703
  Receipt Date: 20120620
  Transmission Date: 20120928
  Serious: Yes (Life-Threatening)
  Sender: FDA-Public Use
  Company Number: JP-FRI-1000031575

PATIENT
  Sex: Female

DRUGS (16)
  1. METOPROLOL TARTRATE [Concomitant]
     Indication: PRODUCT USED FOR UNKNOWN INDICATION
     Dosage: 20 MG
     Route: 048
  2. MEMANTINE HCL [Suspect]
     Indication: DEMENTIA ALZHEIMER'S TYPE
     Dosage: 5 MG
     Route: 048
     Dates: start: 20120210, end: 20120216
  3. MEMANTINE HCL [Suspect]
     Dosage: 15 MG
     Route: 048
     Dates: start: 20120224, end: 20120302
  4. WARFARIN SODIUM [Suspect]
     Indication: PRODUCT USED FOR UNKNOWN INDICATION
     Route: 048
  5. RIVASTACH [Concomitant]
     Indication: DEMENTIA ALZHEIMER'S TYPE
     Dosage: 4.5 MG
     Dates: start: 20110826, end: 20111006
  6. RIVASTACH [Concomitant]
     Dosage: 9 MG
     Dates: start: 20111007, end: 20111103
  7. SEROQUEL [Concomitant]
     Indication: ABNORMAL BEHAVIOUR
     Dosage: 25 MG
     Route: 048
  8. PL (NON-PYRINE COLD PREPARATION) [Suspect]
     Indication: PRODUCT USED FOR UNKNOWN INDICATION
     Route: 048
     Dates: start: 20120418, end: 20120420
  9. CELEBREX [Suspect]
     Dates: end: 20120420
  10. RIVASTACH [Concomitant]
     Dosage: 13.5 MG
     Dates: start: 20111104, end: 20111215
  11. MEMANTINE HCL [Suspect]
     Dosage: 20 MG
     Route: 048
     Dates: start: 20120614
  12. MEMANTINE HCL [Suspect]
     Dosage: 10 MG
     Route: 048
     Dates: start: 20120217, end: 20120223
  13. RIVASTACH [Concomitant]
     Dosage: 18 MG
     Dates: start: 20111218
  14. MEMANTINE HCL [Suspect]
     Dosage: 20 MG
     Route: 048
     Dates: start: 20120303, end: 20120423
  15. MEMANTINE HCL [Suspect]
     Dosage: 10 MG
     Route: 048
     Dates: start: 20120424, end: 20120613
  16. YOKU-KAN-SAN [Concomitant]
     Indication: ABNORMAL BEHAVIOUR
     Dosage: 7.5 GRAM
     Route: 048
     Dates: start: 20111216

REACTIONS (2)
  - UPPER RESPIRATORY TRACT INFLAMMATION [None]
  - RENAL FAILURE ACUTE [None]
